FAERS Safety Report 8910817 (Version 1)
Quarter: 2012Q4

REPORT INFORMATION
  Report Type: Spontaneous
  Country: GB (occurrence: None)
  Receive Date: 20121113
  Receipt Date: 20121113
  Transmission Date: 20130627
  Serious: Yes (Other)
  Sender: FDA-Public Use
  Company Number: GER/UKI/12/0026562

PATIENT
  Sex: Male

DRUGS (4)
  1. CLOPIDOGREL [Suspect]
     Indication: DRUG USE FOR UNKNOWN INDICATION
  2. ASA [Suspect]
     Indication: DRUG USE FOR UNKNOWN INDICATION
  3. HEPARIN (HEPARIN) [Suspect]
     Indication: DRUG USE FOR UNKNOWN INDICATION
  4. REOPRO [Suspect]
     Indication: DRUG USE FOR UNKNOWN INDICATION
     Dosage: Intravenous (not otherwise specified)
     Route: 042

REACTIONS (1)
  - Thrombosis in device [None]
